FAERS Safety Report 11177595 (Version 3)
Quarter: 2015Q3

REPORT INFORMATION
  Report Type: Spontaneous
  Country: JP (occurrence: JP)
  Receive Date: 20150610
  Receipt Date: 20150910
  Transmission Date: 20151125
  Serious: Yes (Hospitalization)
  Sender: FDA-Public Use
  Company Number: JP-JNJFOC-20150604226

PATIENT
  Age: 9 Decade
  Sex: Female

DRUGS (10)
  1. BLOPRESS [Concomitant]
     Active Substance: CANDESARTAN CILEXETIL
     Indication: HYPERTENSION
     Dosage: 1 PER 1 DAY
     Route: 048
     Dates: start: 2011
  2. ELDECALCITOL [Suspect]
     Active Substance: ELDECALCITOL
     Indication: OSTEOPOROSIS
     Dosage: ONCE A DAY
     Route: 048
     Dates: start: 20120822, end: 20141127
  3. CRESTOR [Concomitant]
     Active Substance: ROSUVASTATIN CALCIUM
     Indication: HYPERLIPIDAEMIA
     Dosage: 1 PER 1 DAY
     Route: 048
     Dates: start: 2010
  4. TRAMCET [Suspect]
     Active Substance: ACETAMINOPHEN\TRAMADOL
     Indication: PAIN
     Dosage: 2 DOSAGE FORM 1 PER 1 DAY
     Route: 048
     Dates: start: 20140820, end: 20141126
  5. MAGLAX [Concomitant]
     Active Substance: MAGNESIUM OXIDE
     Indication: CONSTIPATION
     Dosage: 1 PER 1 DAY
     Route: 048
     Dates: start: 2011
  6. LASIX [Concomitant]
     Active Substance: FUROSEMIDE
     Indication: CARDIAC FAILURE CHRONIC
     Dosage: 1 PER 1 DAY
     Route: 048
     Dates: start: 2010
  7. NEXIUM [Concomitant]
     Active Substance: ESOMEPRAZOLE MAGNESIUM
     Indication: ABDOMINAL PAIN UPPER
     Dosage: 1 PER 1 DAY
     Route: 048
     Dates: start: 2013
  8. FEBURIC [Concomitant]
     Active Substance: FEBUXOSTAT
     Indication: HYPERURICAEMIA
     Dosage: 1 PER 1 DAY
     Route: 048
     Dates: start: 2012
  9. CALBLOCK [Concomitant]
     Active Substance: AZELNIDIPINE
     Indication: HYPERTENSION
     Dosage: 1 PER 1 DAY
     Route: 048
     Dates: start: 2010
  10. ALOSENN [Concomitant]
     Active Substance: SENNA LEAF
     Indication: ABDOMINAL PAIN UPPER
     Dosage: 1 PER 1 DAY
     Route: 048
     Dates: start: 2013

REACTIONS (3)
  - Dehydration [Recovered/Resolved]
  - Decreased appetite [Recovered/Resolved]
  - Prerenal failure [Recovered/Resolved]

NARRATIVE: CASE EVENT DATE: 20141120
